FAERS Safety Report 7597499-9 (Version None)
Quarter: 2011Q3

REPORT INFORMATION
  Report Type: 
  Country: None (occurrence: None)
  Receive Date: 20110708
  Receipt Date: 20110613
  Transmission Date: 20111222
  Serious: Yes (Other)
  Sender: FDA-Public Use
  Company Number: US-SANOFI-AVENTIS-2011SA005465

PATIENT
  Age: 74 Year
  Sex: Female

DRUGS (11)
  1. SOLOSTAR [Suspect]
     Dates: start: 20110101
  2. SOLOSTAR [Suspect]
     Dates: start: 20110101, end: 20110101
  3. LANTUS [Suspect]
     Dosage: DOSE:34 UNIT(S)
     Route: 058
     Dates: start: 20100101, end: 20110101
  4. LANTUS [Suspect]
     Dosage: DOSE:102 UNIT(S)
     Route: 058
     Dates: start: 20110101
  5. SOLOSTAR [Suspect]
     Dates: start: 20110101
  6. GLIPIZIDE [Concomitant]
  7. GLIPIZIDE [Concomitant]
     Dates: end: 20101201
  8. LANTUS [Suspect]
     Dosage: DOSE:44 UNIT(S)
     Route: 058
     Dates: start: 20110120
  9. OPTICLICK [Suspect]
     Dates: end: 20110101
  10. LANTUS [Suspect]
     Dosage: DOSE:72 UNIT(S)
     Route: 058
     Dates: start: 20110101, end: 20110101
  11. METFORMIN HCL [Concomitant]

REACTIONS (4)
  - BLOOD GLUCOSE INCREASED [None]
  - FALL [None]
  - BLOOD GLUCOSE DECREASED [None]
  - FEMUR FRACTURE [None]
